FAERS Safety Report 13404883 (Version 2)
Quarter: 2017Q2

REPORT INFORMATION
  Report Type: Spontaneous
  Country: JP (occurrence: JP)
  Receive Date: 20170405
  Receipt Date: 20170515
  Transmission Date: 20170830
  Serious: Yes (Hospitalization, Other)
  Sender: FDA-Public Use
  Company Number: JP-PFIZER INC-2017093004

PATIENT
  Age: 83 Year
  Sex: Male
  Weight: 53.4 kg

DRUGS (7)
  1. SALAZOPYRIN 500MG [Suspect]
     Active Substance: SULFASALAZINE
     Indication: COLITIS ULCERATIVE
     Dosage: 1000 MG, 2X/DAY
     Route: 048
     Dates: end: 20170303
  2. MILLACT [Concomitant]
     Indication: COLITIS ULCERATIVE
     Dosage: 500 MG, 2X/DAY
     Route: 048
     Dates: end: 20170222
  3. LANDSEN [Concomitant]
     Active Substance: CLONAZEPAM
     Indication: TREMOR
     Dosage: 0.5 MG, 3X/DAY
     Route: 048
     Dates: end: 20170222
  4. BIOFERMIN /01617201/ [Concomitant]
     Active Substance: BACILLUS SUBTILIS\LACTOBACILLUS ACIDOPHILUS\STREPTOCOCCUS FAECAIS
     Indication: COLITIS ULCERATIVE
     Dosage: 1 G, 2X/DAY
     Route: 048
     Dates: end: 20170222
  5. BLOPRESS [Concomitant]
     Active Substance: CANDESARTAN CILEXETIL
     Indication: HYPERTENSION
     Dosage: 8 MG, 1X/DAY
     Route: 048
     Dates: end: 20170222
  6. AROTINOLOL [Concomitant]
     Active Substance: AROTINOLOL
     Indication: TREMOR
     Dosage: 10 MG, 2X/DAY
     Route: 048
     Dates: end: 20170222
  7. DOGMATYL [Concomitant]
     Active Substance: SULPIRIDE
     Indication: TREMOR
     Dosage: 50 MG, 2X/DAY
     Route: 048
     Dates: end: 20170222

REACTIONS (2)
  - Lung disorder [Not Recovered/Not Resolved]
  - Infective spondylitis [Not Recovered/Not Resolved]

NARRATIVE: CASE EVENT DATE: 20170222
